FAERS Safety Report 10763808 (Version 1)
Quarter: 2015Q1

REPORT INFORMATION
  Report Type: Spontaneous
  Country: GB (occurrence: DK)
  Receive Date: 20150204
  Receipt Date: 20150204
  Transmission Date: 20150721
  Serious: Yes (Congenital Anomaly)
  Sender: FDA-Public Use
  Company Number: PHHY2015DK009712

PATIENT
  Age: 0 Day
  Sex: Male

DRUGS (1)
  1. FLUXANTIN [Suspect]
     Active Substance: FLUOXETINE HYDROCHLORIDE
     Indication: PRODUCT USED FOR UNKNOWN INDICATION
     Dosage: (MATERNAL DOSE:UNKNOWN)
     Route: 064

REACTIONS (7)
  - Foetal exposure during pregnancy [Unknown]
  - Abnormal behaviour [Not Recovered/Not Resolved]
  - Mental retardation [Not Recovered/Not Resolved]
  - Dysmorphism [Not Recovered/Not Resolved]
  - Lip disorder [Not Recovered/Not Resolved]
  - Micropenis [Not Recovered/Not Resolved]
  - Maternal drugs affecting foetus [None]

NARRATIVE: CASE EVENT DATE: 20100211
